FAERS Safety Report 4829273-8 (Version None)
Quarter: 2005Q4

REPORT INFORMATION
  Report Type: 
  Country: None (occurrence: None)
  Receive Date: 20051116
  Receipt Date: 20051111
  Transmission Date: 20060501
  Serious: Yes (Other)
  Sender: FDA-Public Use
  Company Number: US-GLAXOSMITHKLINE-A0581939A

PATIENT
  Age: 54 Year
  Sex: Female

DRUGS (8)
  1. REQUIP [Suspect]
     Indication: RESTLESS LEGS SYNDROME
     Dosage: .5MG THREE TIMES PER DAY
     Route: 048
     Dates: start: 20050901
  2. LIPITOR [Concomitant]
  3. TRICOR [Concomitant]
  4. GLUCOPHAGE [Concomitant]
  5. VITAMIN B-12 [Concomitant]
  6. ASPIRIN [Concomitant]
  7. MULTIPLE VITAMIN [Concomitant]
  8. VITAMIN B6 [Concomitant]

REACTIONS (5)
  - CIRCULATORY COLLAPSE [None]
  - HYPOAESTHESIA [None]
  - INSOMNIA [None]
  - PARAESTHESIA [None]
  - VOMITING [None]
